FAERS Safety Report 9509544 (Version 1)
Quarter: 2013Q3

REPORT INFORMATION
  Report Type: Spontaneous
  Country: US (occurrence: US)
  Receive Date: 20130909
  Receipt Date: 20130909
  Transmission Date: 20140515
  Serious: No
  Sender: FDA-Public Use
  Company Number: US-BRISTOL-MYERS SQUIBB COMPANY-17250002

PATIENT
  Sex: Female

DRUGS (3)
  1. ABILIFY [Suspect]
     Dates: end: 20121223
  2. DEPAKOTE [Concomitant]
  3. TOPAMAX [Concomitant]

REACTIONS (3)
  - Tardive dyskinesia [Unknown]
  - Anxiety [Unknown]
  - Insomnia [Unknown]
